FAERS Safety Report 7301358-6 (Version None)
Quarter: 2011Q1

REPORT INFORMATION
  Report Type: 
  Country: None (occurrence: None)
  Receive Date: 20110113
  Receipt Date: 20100915
  Transmission Date: 20110831
  Serious: No
  Sender: FDA-Public Use
  Company Number: US-001253

PATIENT
  Sex: Male
  Weight: 63.5036 kg

DRUGS (7)
  1. KUVAN [Suspect]
     Indication: PHENYLKETONURIA
     Dosage: (1000 MG QD ORAL) (1000 MG QD ORAL) (1000 MG QD ORAL) (1000 MG QD ORAL) (1000 MG QD ORAL)
     Route: 048
     Dates: start: 20080828, end: 20080101
  2. KUVAN [Suspect]
     Indication: PHENYLKETONURIA
     Dosage: (1000 MG QD ORAL) (1000 MG QD ORAL) (1000 MG QD ORAL) (1000 MG QD ORAL) (1000 MG QD ORAL)
     Route: 048
     Dates: end: 20090501
  3. KUVAN [Suspect]
     Indication: PHENYLKETONURIA
     Dosage: (1000 MG QD ORAL) (1000 MG QD ORAL) (1000 MG QD ORAL) (1000 MG QD ORAL) (1000 MG QD ORAL)
     Route: 048
     Dates: start: 20100101, end: 20100817
  4. KUVAN [Suspect]
     Indication: PHENYLKETONURIA
     Dosage: (1000 MG QD ORAL) (1000 MG QD ORAL) (1000 MG QD ORAL) (1000 MG QD ORAL) (1000 MG QD ORAL)
     Route: 048
     Dates: end: 20090101
  5. KUVAN [Suspect]
     Indication: PHENYLKETONURIA
     Dosage: (1000 MG QD ORAL) (1000 MG QD ORAL) (1000 MG QD ORAL) (1000 MG QD ORAL) (1000 MG QD ORAL)
     Route: 048
     Dates: start: 20090809, end: 20100623
  6. VYVANSE [Concomitant]
  7. TYLENOL PM, EXTRA STRENGTH [Concomitant]

REACTIONS (7)
  - ABDOMINAL PAIN UPPER [None]
  - DIET REFUSAL [None]
  - PRURITUS [None]
  - DIZZINESS [None]
  - HEADACHE [None]
  - RASH [None]
  - GENERALISED ERYTHEMA [None]
